FAERS Safety Report 7767152-7 (Version None)
Quarter: 2011Q3

REPORT INFORMATION
  Report Type: 
  Country: None (occurrence: None)
  Receive Date: 20110922
  Receipt Date: 20110207
  Transmission Date: 20111222
  Serious: No
  Sender: FDA-Public Use
  Company Number: US-ASTRAZENECA-2011SE07105

PATIENT
  Age: 44 Year
  Sex: Female
  Weight: 86.2 kg

DRUGS (3)
  1. DEPAKOTE [Concomitant]
  2. SEROQUEL [Suspect]
     Indication: BIPOLAR DISORDER
     Route: 048
     Dates: start: 20100101, end: 20110205
  3. BUPROPION HCL [Concomitant]

REACTIONS (4)
  - DRUG DOSE OMISSION [None]
  - HEADACHE [None]
  - ASTHENIA [None]
  - WEIGHT INCREASED [None]
